FAERS Safety Report 4458974-9 (Version None)
Quarter: 2004Q3

REPORT INFORMATION
  Report Type: 
  Country: None (occurrence: None)
  Receive Date: 20040923
  Receipt Date: 20040923
  Transmission Date: 20050211
  Serious: No
  Sender: FDA-Public Use
  Company Number: None

PATIENT
  Age: 70 Year
  Sex: Male
  Weight: 108.8633 kg

DRUGS (8)
  1. WARFARIN SODIUM [Suspect]
     Indication: ATRIAL FIBRILLATION
     Dosage: 7.5 MG M/W/F + 5 MG OTHER
     Dates: start: 20040916
  2. LEXAPRO [Suspect]
     Indication: DEPRESSION
     Dosage: ALT 1 TAB QD W/ 0.5 QOD
     Dates: start: 20040520, end: 20040913
  3. COREG [Concomitant]
  4. ATACAND [Concomitant]
  5. LIPITOR [Concomitant]
  6. FUROSEMIDE [Concomitant]
  7. PROPOXY/APAP [Concomitant]
  8. PACEMAKER [Concomitant]

REACTIONS (3)
  - CONTUSION [None]
  - DRUG INTERACTION [None]
  - HAEMATOMA [None]
